FAERS Safety Report 7445007-5 (Version None)
Quarter: 2011Q2

REPORT INFORMATION
  Report Type: 
  Country: None (occurrence: None)
  Receive Date: 20110429
  Receipt Date: 20110414
  Transmission Date: 20111010
  Serious: Yes (Other)
  Sender: FDA-Public Use
  Company Number: US-JNJFOC-2011003242

PATIENT
  Age: 57 Year
  Sex: Female
  Weight: 71.2 kg

DRUGS (1)
  1. BENGAY ULTRA STRENGTH [Suspect]
     Indication: MYALGIA
     Dosage: DAILY DOSE TEXT: ONCE
     Route: 061
     Dates: start: 20110112, end: 20110112

REACTIONS (3)
  - APPLICATION SITE PAIN [None]
  - PRODUCT QUALITY ISSUE [None]
  - BURNS SECOND DEGREE [None]
